FAERS Safety Report 5261558-6 (Version None)
Quarter: 2007Q1

REPORT INFORMATION
  Report Type: 
  Country: None (occurrence: None)
  Receive Date: 20070307
  Receipt Date: 20070219
  Transmission Date: 20070707
  Serious: Yes (Life-Threatening, Hospitalization)
  Sender: FDA-Public Use
  Company Number: 237271

PATIENT
  Age: 67 Year
  Sex: Female
  Weight: 81.2 kg

DRUGS (6)
  1. AVASTIN [Suspect]
     Indication: BREAST CANCER METASTATIC
     Dosage: 1242 MG, Q3W, INTRAVENOUS
     Route: 042
     Dates: start: 20070126
  2. TAXOTERE [Suspect]
     Indication: BREAST CANCER METASTATIC
     Dosage: 190 MG, Q3W, INTRAVENOUS
     Route: 042
     Dates: start: 20070126
  3. LEVOTHYROXINE SODIUM [Concomitant]
  4. ZOFRAN [Concomitant]
  5. FORTECORTIN (DEXAMETHASONE) [Concomitant]
  6. LISINOPRIL [Concomitant]

REACTIONS (4)
  - CATHETER SEPSIS [None]
  - IMPAIRED HEALING [None]
  - PLATELET COUNT DECREASED [None]
  - WOUND DEHISCENCE [None]
